FAERS Safety Report 8977953 (Version 1)
Quarter: 2012Q4

REPORT INFORMATION
  Report Type: 
  Country: DK (occurrence: FR)
  Receive Date: 20121219
  Receipt Date: 20121219
  Transmission Date: 20130627
  Serious: Yes (Hospitalization)
  Sender: FDA-Public Use
  Company Number: FR-FRI-1000026955

PATIENT
  Sex: Male

DRUGS (15)
  1. ESCITALOPRAM [Suspect]
     Route: 048
     Dates: start: 201102, end: 201106
  2. ESCITALOPRAM [Suspect]
     Route: 048
     Dates: end: 2012
  3. LAMALINE [Suspect]
     Route: 048
     Dates: start: 201102, end: 2012
  4. ORENCIA [Concomitant]
     Route: 042
     Dates: start: 2008, end: 20111017
  5. ORENCIA [Concomitant]
     Route: 042
     Dates: start: 201205
  6. EZETROL [Concomitant]
  7. OGAST [Concomitant]
     Route: 048
  8. ATENOLOL [Concomitant]
     Route: 048
  9. TANAKAN [Concomitant]
  10. ETIOVEN [Concomitant]
  11. BIPERIDYS [Concomitant]
  12. LEGALON [Concomitant]
  13. METHOTREXATE [Concomitant]
  14. SPECIAFOLDINE [Concomitant]
  15. ALPRAZOLAM [Concomitant]

REACTIONS (1)
  - Glomerulonephritis membranous [Recovering/Resolving]
